FAERS Safety Report 9321141 (Version 1)
Quarter: 2013Q2

REPORT INFORMATION
  Report Type: Spontaneous
  Country: ES (occurrence: None)
  Receive Date: 20130528
  Receipt Date: 20130528
  Transmission Date: 20140414
  Serious: Yes (Hospitalization)
  Sender: FDA-Public Use
  Company Number: 2013AP005398

PATIENT
  Age: 22 Year
  Sex: 0

DRUGS (1)
  1. METFORMIN [Suspect]

REACTIONS (2)
  - Suicide attempt [None]
  - Lactic acidosis [None]
